FAERS Safety Report 12407360 (Version 3)
Quarter: 2017Q1

REPORT INFORMATION
  Report Type: Spontaneous
  Country: US (occurrence: US)
  Receive Date: 20160526
  Receipt Date: 20170118
  Transmission Date: 20170428
  Serious: No
  Sender: FDA-Public Use
  Company Number: US-PFIZER INC-2016276950

PATIENT
  Age: 57 Year
  Sex: Female

DRUGS (2)
  1. XELJANZ XR [Suspect]
     Active Substance: TOFACITINIB CITRATE
     Indication: RHEUMATOID ARTHRITIS
     Dosage: 11 MG, DAILY, (EXTENDED RELEASE 11 MG TABLETS)
  2. XELJANZ XR [Suspect]
     Active Substance: TOFACITINIB CITRATE
     Indication: ALOPECIA

REACTIONS (8)
  - Arthropathy [Unknown]
  - Pain in extremity [Unknown]
  - Joint range of motion decreased [Unknown]
  - Disease recurrence [Unknown]
  - Arthralgia [Recovering/Resolving]
  - Alopecia [Unknown]
  - Insomnia [Unknown]
  - Exostosis [Unknown]

NARRATIVE: CASE EVENT DATE: 201501
